FAERS Safety Report 5032685-3 (Version None)
Quarter: 2006Q2

REPORT INFORMATION
  Report Type: 
  Country: None (occurrence: None)
  Receive Date: 20060515
  Receipt Date: 20060131
  Transmission Date: 20061013
  Serious: No
  Sender: FDA-Public Use
  Company Number: S06-USA-00360-01

PATIENT
  Age: 86 Year
  Sex: Female

DRUGS (8)
  1. NAMENDA [Suspect]
     Indication: DEMENTIA
     Dosage: 5 MG QD PO
     Route: 048
     Dates: start: 20060119, end: 20060125
  2. NAMENDA [Suspect]
     Indication: DEMENTIA
     Dosage: 5 MG BID PO
     Route: 048
     Dates: start: 20060126
  3. ARICEPT [Concomitant]
  4. PROTONIX [Concomitant]
  5. LEVOXYL [Concomitant]
  6. POTASSIUM [Concomitant]
  7. VIOKASE (PANCRELIPASE) [Concomitant]
  8. TRAZODONE HCL [Concomitant]

REACTIONS (2)
  - AMNESIA [None]
  - CONFUSIONAL STATE [None]
